FAERS Safety Report 12673403 (Version 2)
Quarter: 2016Q4

REPORT INFORMATION
  Report Type: Spontaneous
  Country: US (occurrence: US)
  Receive Date: 20160822
  Receipt Date: 20161111
  Transmission Date: 20170207
  Serious: No
  Sender: FDA-Public Use
  Company Number: US-ACTELION-A-US2016-141060

PATIENT
  Age: 53 Year
  Sex: Female

DRUGS (1)
  1. VALCHLOR [Suspect]
     Active Substance: MECHLORETHAMINE
     Indication: MYCOSIS FUNGOIDES
     Dosage: UNK, THIN FILM DAILY
     Route: 061
     Dates: start: 20160721

REACTIONS (4)
  - Pruritus [Unknown]
  - Myalgia [Unknown]
  - Skin discolouration [Unknown]
  - Application site irritation [Unknown]
